FAERS Safety Report 11773182 (Version 3)
Quarter: 2016Q1

REPORT INFORMATION
  Report Type: Report from Study
  Country: US (occurrence: US)
  Receive Date: 20151124
  Receipt Date: 20160218
  Transmission Date: 20160525
  Serious: No
  Sender: FDA-Public Use
  Company Number: PHEH2015US024430

PATIENT
  Age: 66 Year
  Sex: Female
  Weight: 45.35 kg

DRUGS (1)
  1. GILENYA [Suspect]
     Active Substance: FINGOLIMOD HYDROCHLORIDE
     Indication: MULTIPLE SCLEROSIS
     Dosage: 0.5 MG, QD
     Route: 048
     Dates: start: 20151029, end: 20151119

REACTIONS (6)
  - Pruritus [Unknown]
  - Limb injury [Unknown]
  - Fatigue [Unknown]
  - Wound [Unknown]
  - Productive cough [Unknown]
  - Diarrhoea [Unknown]

NARRATIVE: CASE EVENT DATE: 20151118
